FAERS Safety Report 10142628 (Version 1)
Quarter: 2014Q2

REPORT INFORMATION
  Report Type: Spontaneous
  Country: US (occurrence: None)
  Receive Date: 20140428
  Receipt Date: 20140428
  Transmission Date: 20141212
  Serious: Yes (Hospitalization)
  Sender: FDA-Public Use
  Company Number: None

PATIENT
  Age: 82 Year
  Sex: Female
  Weight: 42.6 kg

DRUGS (7)
  1. METFORMIN [Suspect]
     Indication: PANCREATIC CARCINOMA
     Route: 048
     Dates: start: 20140318, end: 20140331
  2. OXALIPLATIN [Suspect]
     Route: 042
     Dates: start: 20140325
  3. LEVOTHYROXINE [Concomitant]
  4. MVI [Concomitant]
  5. CREON [Concomitant]
  6. CHOLECALCIFEROL [Concomitant]
  7. LEUKOVORIN [Concomitant]

REACTIONS (9)
  - Nausea [None]
  - Vomiting [None]
  - Weight decreased [None]
  - Fatigue [None]
  - Performance status decreased [None]
  - Malnutrition [None]
  - Pyrexia [None]
  - Pneumonia [None]
  - Cholecystitis infective [None]
